FAERS Safety Report 18340392 (Version 1)
Quarter: 2020Q4

REPORT INFORMATION
  Report Type: Spontaneous
  Country: DE (occurrence: DE)
  Receive Date: 20201002
  Receipt Date: 20201002
  Transmission Date: 20210113
  Serious: Yes (Life-Threatening, Hospitalization)
  Sender: FDA-Public Use
  Company Number: DE-TEVA-2020-DE-1831393

PATIENT
  Age: 92 Year
  Sex: Female

DRUGS (14)
  1. SPIRONOLACTON [Suspect]
     Active Substance: SPIRONOLACTONE
     Dosage: .5 DOSAGE FORMS DAILY; 50 MG, 0.5-0-0-0,
     Route: 048
  2. TORASEMID [Suspect]
     Active Substance: TORSEMIDE
     Dosage: 10 MILLIGRAM DAILY; 1-0-0-0,
     Route: 048
  3. METOPROLOL. [Suspect]
     Active Substance: METOPROLOL
     Dosage: 47.5 MG, 2-0-1-0,
     Route: 048
  4. TILIDINE/NALOXONE [Concomitant]
     Active Substance: NALOXONE HYDROCHLORIDE\TILIDINE HYDROCHLORIDE
     Dosage: 2 DOSAGE FORMS DAILY; 4|50 MG, 1-0-1-0,
     Route: 048
  5. OPIPRAMOL [Concomitant]
     Active Substance: OPIPRAMOL
     Dosage: .5 DOSAGE FORMS DAILY; 50 MG, 0-0-0.5-0,
     Route: 048
  6. OMEPRAZOL [Concomitant]
     Active Substance: OMEPRAZOLE
     Dosage: 20 MILLIGRAM DAILY; 1-0-0-0,
     Route: 048
  7. CANDESARTAN. [Concomitant]
     Active Substance: CANDESARTAN
     Dosage: 32 MILLIGRAM DAILY; 1-0-1-0,
     Route: 048
  8. MOXONIDIN [Suspect]
     Active Substance: MOXONIDINE
     Dosage: .4 MILLIGRAM DAILY;  1-0-0-1,
     Route: 048
  9. SITAGLIPTIN [Concomitant]
     Active Substance: SITAGLIPTIN
     Dosage: 50 MILLIGRAM DAILY; 1-0-0-0
     Route: 048
  10. NATRIUMPICOSULFAT [Concomitant]
     Dosage: 6 DOSAGE FORMS DAILY; 7.5 MG, 0-0-6-0,
     Route: 048
  11. EZETIMIB/SIMVASTATIN [Concomitant]
     Active Substance: EZETIMIBE\SIMVASTATIN
     Dosage: 1 DOSAGE FORMS DAILY; 10|20 MG, 0-0-0-1,
     Route: 048
  12. AMLODIPIN [Concomitant]
     Active Substance: AMLODIPINE BESYLATE
     Dosage: 10 MILLIGRAM DAILY; 0-0-1-0,
  13. ACETYLSALICYLSAURE [Concomitant]
     Active Substance: ASPIRIN
     Dosage: 100 MILLIGRAM DAILY; 1-0-0-0,
     Route: 048
  14. INSULIN (HUMAN)/INSULIN-ISOPHAN (HUMAN) [Concomitant]
     Dosage: 25 | 75 IU, 18-0-12-0
     Route: 058

REACTIONS (10)
  - Arrhythmia [Recovering/Resolving]
  - General physical health deterioration [Recovering/Resolving]
  - Dyspnoea [Recovering/Resolving]
  - Hyponatraemia [Recovering/Resolving]
  - Dizziness [Recovering/Resolving]
  - Condition aggravated [Recovering/Resolving]
  - Electrolyte imbalance [Recovering/Resolving]
  - Malaise [Recovering/Resolving]
  - Bradycardia [Recovering/Resolving]
  - Acute kidney injury [Recovering/Resolving]
